FAERS Safety Report 8862057 (Version 2)
Quarter: 2012Q4

REPORT INFORMATION
  Report Type: 
  Country: US (occurrence: US)
  Receive Date: 20121026
  Receipt Date: 20121205
  Transmission Date: 20130627
  Serious: Yes (Death, Congenital Anomaly, Other)
  Sender: FDA-Public Use
  Company Number: US-PFIZER INC-2012263773

PATIENT
  Sex: Male
  Weight: 1.44 kg

DRUGS (2)
  1. ZOLOFT [Suspect]
     Dosage: UNK
     Route: 064
  2. SERTRALINE HCL [Suspect]
     Dosage: UNK
     Route: 064

REACTIONS (2)
  - Maternal exposure timing unspecified [Fatal]
  - Anencephaly [Fatal]
